FAERS Safety Report 7574934-3 (Version None)
Quarter: 2011Q2

REPORT INFORMATION
  Report Type: 
  Country: None (occurrence: None)
  Receive Date: 20110627
  Receipt Date: 20110621
  Transmission Date: 20111010
  Serious: Yes (Hospitalization)
  Sender: FDA-Public Use
  Company Number: JP-SANOFI-AVENTIS-2011SA039355

PATIENT
  Age: 70 Year
  Sex: Female

DRUGS (3)
  1. XELODA [Concomitant]
     Route: 048
  2. OXALIPLATIN [Suspect]
     Indication: LARGE INTESTINE CARCINOMA
     Route: 041
     Dates: start: 20110127, end: 20110425
  3. XELODA [Concomitant]
     Indication: LARGE INTESTINE CARCINOMA
     Route: 048
     Dates: start: 20110127, end: 20110425

REACTIONS (1)
  - OXYGEN SATURATION DECREASED [None]
